FAERS Safety Report 23438425 (Version 1)
Quarter: 2024Q1

REPORT INFORMATION
  Report Type: Spontaneous
  Country: EU (occurrence: EU)
  Receive Date: 20240124
  Receipt Date: 20240124
  Transmission Date: 20240410
  Serious: Yes (Other)
  Sender: FDA-Public Use
  Company Number: EU-ETHYPHARM-201900954

PATIENT

DRUGS (6)
  1. MORPHINE SULFATE [Suspect]
     Active Substance: MORPHINE SULFATE
     Indication: Substance use
     Dosage: FROM 60 TO 80 MG IN A SINGLE INTAKE, 2 TO 3 TIMES WEEKLY
     Route: 045
     Dates: start: 2018
  2. MORPHINE SULFATE [Suspect]
     Active Substance: MORPHINE SULFATE
     Indication: Substance use
     Route: 045
  3. MORPHINE SULFATE [Suspect]
     Active Substance: MORPHINE SULFATE
     Indication: Product used for unknown indication
     Route: 045
  4. CODEINE [Suspect]
     Active Substance: CODEINE
     Indication: Substance use
     Dosage: 60 MG PER INTAKE
     Route: 065
  5. CODEINE [Suspect]
     Active Substance: CODEINE
     Indication: Substance use
     Dosage: 150 MG PER INTAKE
     Route: 065
  6. TRAMADOL [Suspect]
     Active Substance: TRAMADOL\TRAMADOL HYDROCHLORIDE
     Indication: Substance use
     Dosage: 300 MG PER INTAKE
     Route: 065

REACTIONS (22)
  - Drug abuse [Unknown]
  - Intentional product use issue [Unknown]
  - Drug tolerance increased [Unknown]
  - Wrong technique in product usage process [Unknown]
  - Nausea [Unknown]
  - Feeling hot [Unknown]
  - Nightmare [Unknown]
  - Nightmare [Unknown]
  - Somnolence [Unknown]
  - Anxiolytic therapy [Unknown]
  - Drug dependence [Unknown]
  - Diarrhoea [Unknown]
  - Feeling of body temperature change [Unknown]
  - Hyperhidrosis [Unknown]
  - Yawning [Unknown]
  - Rhinorrhoea [Unknown]
  - Tension [Unknown]
  - Euphoric mood [Unknown]
  - Vomiting [Unknown]
  - Back pain [Unknown]
  - Feeling abnormal [Unknown]
  - Anorgasmia [Unknown]
